FAERS Safety Report 8378460-3 (Version None)
Quarter: 2012Q2

REPORT INFORMATION
  Report Type: 
  Country: None (occurrence: None)
  Receive Date: 20120522
  Receipt Date: 20110923
  Transmission Date: 20120825
  Serious: No
  Sender: FDA-Public Use
  Company Number: US-ASTRAZENECA-2011SE57360

PATIENT
  Age: 74 Year
  Sex: Female
  Weight: 63.5 kg

DRUGS (4)
  1. BLOOD PRESSURE MEDICATION [Concomitant]
  2. PRILOSEC [Suspect]
     Indication: GASTROOESOPHAGEAL REFLUX DISEASE
     Route: 048
  3. CHOLESTEROL MEDICATION [Concomitant]
  4. ASPIRIN [Concomitant]

REACTIONS (5)
  - GASTROOESOPHAGEAL REFLUX DISEASE [None]
  - OESOPHAGEAL FOOD IMPACTION [None]
  - ERUCTATION [None]
  - ABDOMINAL DISTENSION [None]
  - DRUG INEFFECTIVE [None]
